FAERS Safety Report 6842417-1 (Version None)
Quarter: 2010Q3

REPORT INFORMATION
  Report Type: 
  Country: None (occurrence: None)
  Receive Date: 20100714
  Receipt Date: 20070728
  Transmission Date: 20110219
  Serious: No
  Sender: FDA-Public Use
  Company Number: US-PFIZER INC-2007063109

PATIENT
  Sex: Female
  Weight: 77.3 kg

DRUGS (6)
  1. CHANTIX [Suspect]
     Indication: SMOKING CESSATION THERAPY
     Dates: start: 20070722, end: 20070728
  2. DYAZIDE [Concomitant]
  3. CELEBREX [Concomitant]
  4. ANTITHROMBOTIC AGENTS [Concomitant]
  5. ANTIINFLAMMATORY/ANTIRHEUMATIC PRODUCTS [Concomitant]
  6. OTHER NERVOUS SYSTEM DRUGS [Concomitant]

REACTIONS (4)
  - ANXIETY [None]
  - DRUG LEVEL DECREASED [None]
  - MUSCLE SPASMS [None]
  - PALPITATIONS [None]
